FAERS Safety Report 5706225-7 (Version None)
Quarter: 2008Q2

REPORT INFORMATION
  Report Type: 
  Country: None (occurrence: None)
  Receive Date: 20080415
  Receipt Date: 20080303
  Transmission Date: 20081010
  Serious: No
  Sender: FDA-Public Use
  Company Number: US-BOEHRINGER INGELHEIM GMBH, GERMANY-2008-BP-03164BP

PATIENT
  Age: 68 Year
  Sex: Male

DRUGS (2)
  1. FLOMAX [Suspect]
     Indication: BENIGN PROSTATIC HYPERPLASIA
     Route: 048
     Dates: start: 20080224
  2. ANTIBIOTIC (UNSPECIFIED) [Concomitant]
     Indication: SKIN INFECTION

REACTIONS (2)
  - DRUG INEFFECTIVE [None]
  - NOCTURIA [None]
